FAERS Safety Report 24607293 (Version 4)
Quarter: 2025Q2

REPORT INFORMATION
  Report Type: Spontaneous
  Country: US (occurrence: US)
  Receive Date: 20241112
  Receipt Date: 20250530
  Transmission Date: 20250717
  Serious: No
  Sender: ABBVIE
  Company Number: US-ABBVIE-5990769

PATIENT
  Age: 84 Year
  Sex: Female

DRUGS (5)
  1. ESTRADIOL [Suspect]
     Active Substance: ESTRADIOL
     Indication: Prophylaxis urinary tract infection
     Route: 061
  2. ESTRADIOL [Suspect]
     Active Substance: ESTRADIOL
     Indication: Prophylaxis urinary tract infection
     Dosage: UNKNOWN
     Route: 061
     Dates: start: 202411
  3. ESTRADIOL [Suspect]
     Active Substance: ESTRADIOL
     Indication: Vulvovaginal dryness
     Route: 061
  4. ESTRADIOL [Suspect]
     Active Substance: ESTRADIOL
     Indication: Urinary tract disorder prophylaxis
  5. ESTRADIOL [Suspect]
     Active Substance: ESTRADIOL
     Indication: Prophylaxis

REACTIONS (5)
  - Off label use [Unknown]
  - Vulvovaginal discomfort [Recovering/Resolving]
  - Vaginal discharge [Unknown]
  - Vulvovaginal burning sensation [Recovering/Resolving]
  - Urinary tract infection [Unknown]

NARRATIVE: CASE EVENT DATE: 20241101
